FAERS Safety Report 9478454 (Version 1)
Quarter: 2013Q3

REPORT INFORMATION
  Report Type: Spontaneous
  Country: US (occurrence: US)
  Receive Date: 20130827
  Receipt Date: 20130827
  Transmission Date: 20140515
  Serious: Yes (Other)
  Sender: FDA-Public Use
  Company Number: US-PFIZER INC-2013238170

PATIENT
  Age: 69 Year
  Sex: Male
  Weight: 99.77 kg

DRUGS (2)
  1. LYRICA [Suspect]
     Indication: NEUROPATHY PERIPHERAL
     Dosage: 400 MG, 1X/DAY
  2. LYRICA [Suspect]
     Dosage: 100 MG, 3X/DAY
     Route: 048

REACTIONS (3)
  - Cognitive disorder [Unknown]
  - Respiratory tract infection [Unknown]
  - Sinusitis [Unknown]
